FAERS Safety Report 25144799 (Version 1)
Quarter: 2025Q1

REPORT INFORMATION
  Report Type: Spontaneous
  Country: US (occurrence: None)
  Receive Date: 20250331
  Receipt Date: 20250331
  Transmission Date: 20250409
  Serious: Yes (Other)
  Sender: FDA-CTU
  Company Number: None

PATIENT
  Age: 61 Year
  Sex: Female
  Weight: 95.4 kg

DRUGS (2)
  1. PAXLOVID [Suspect]
     Active Substance: NIRMATRELVIR\RITONAVIR
     Indication: COVID-19
     Dosage: OTHER QUANTITY : 3 TABLET(S);?FREQUENCY : TWICE A DAY;?
     Route: 048
  2. Ketamind [Concomitant]

REACTIONS (6)
  - Diarrhoea [None]
  - Blister [None]
  - Rectal haemorrhage [None]
  - Parosmia [None]
  - Decreased appetite [None]
  - Abdominal pain lower [None]

NARRATIVE: CASE EVENT DATE: 20250326
